FAERS Safety Report 8192844-8 (Version None)
Quarter: 2012Q1

REPORT INFORMATION
  Report Type: 
  Country: None (occurrence: None)
  Receive Date: 20120308
  Receipt Date: 20120228
  Transmission Date: 20120608
  Serious: Yes (Other)
  Sender: FDA-Public Use
  Company Number: CA-JNJFOC-20120214632

PATIENT
  Sex: Female
  Weight: 56 kg

DRUGS (4)
  1. REMICADE [Suspect]
     Indication: COLITIS
     Route: 042
     Dates: start: 20100513
  2. REMICADE [Suspect]
     Indication: CROHN'S DISEASE
     Route: 042
     Dates: start: 20100513
  3. ASACOL [Concomitant]
     Route: 065
  4. IMURAN [Concomitant]
     Route: 065

REACTIONS (1)
  - ENDOMETRIOSIS [None]
